FAERS Safety Report 14705312 (Version 2)
Quarter: 2018Q2

REPORT INFORMATION
  Report Type: Report from Study
  Country: US (occurrence: US)
  Receive Date: 20180402
  Receipt Date: 20180426
  Transmission Date: 20180711
  Serious: Yes (Hospitalization, Other)
  Sender: FDA-Public Use
  Company Number: US-JNJFOC-20180337980

PATIENT
  Sex: Male
  Weight: 63.05 kg

DRUGS (5)
  1. ALLEGRA [Concomitant]
     Active Substance: FEXOFENADINE HYDROCHLORIDE
     Route: 065
  2. REMICADE [Suspect]
     Active Substance: INFLIXIMAB
     Indication: COLITIS
     Route: 042
  3. FOLIC ACID. [Concomitant]
     Active Substance: FOLIC ACID
     Route: 065
  4. ASACOL HD [Concomitant]
     Active Substance: MESALAMINE
     Route: 065
     Dates: start: 2015
  5. LIALDA [Concomitant]
     Active Substance: MESALAMINE
     Route: 065

REACTIONS (3)
  - Cholangitis sclerosing [Not Recovered/Not Resolved]
  - Arthralgia [Recovered/Resolved]
  - Injury [Recovered/Resolved]

NARRATIVE: CASE EVENT DATE: 2018
